FAERS Safety Report 5373398-8 (Version None)
Quarter: 2007Q2

REPORT INFORMATION
  Report Type: 
  Country: None (occurrence: None)
  Receive Date: 20070628
  Receipt Date: 20061107
  Transmission Date: 20071010
  Serious: Yes (Other)
  Sender: FDA-Public Use
  Company Number: US-BRISTOL-MYERS SQUIBB COMPANY-13568639

PATIENT
  Sex: Female

DRUGS (1)
  1. NYSTATIN [Suspect]
     Indication: VAGINAL INFECTION
     Route: 067
     Dates: start: 20060311, end: 20060511

REACTIONS (1)
  - PREGNANCY [None]
